FAERS Safety Report 25515420 (Version 6)
Quarter: 2025Q4

REPORT INFORMATION
  Report Type: Spontaneous
  Country: JP (occurrence: JP)
  Receive Date: 20250704
  Receipt Date: 20251023
  Transmission Date: 20260118
  Serious: Yes (Life-Threatening, Other)
  Sender: ABBVIE
  Company Number: JP-ABBVIE-6356522

PATIENT
  Age: 74 Year
  Sex: Female
  Weight: 58 kg

DRUGS (2)
  1. SKYRIZI [Suspect]
     Active Substance: RISANKIZUMAB-RZAA
     Indication: Psoriasis
     Route: 058
     Dates: start: 20210513, end: 20211110
  2. INDAPAMIDE [Concomitant]
     Active Substance: INDAPAMIDE
     Indication: Hypertension
     Route: 065

REACTIONS (1)
  - Endometrial cancer [Recovering/Resolving]

NARRATIVE: CASE EVENT DATE: 20210917
